FAERS Safety Report 10414005 (Version 1)
Quarter: 2014Q3

REPORT INFORMATION
  Report Type: Spontaneous
  Country: US (occurrence: US)
  Receive Date: 20140827
  Receipt Date: 20140827
  Transmission Date: 20150326
  Serious: No
  Sender: FDA-Public Use
  Company Number: US-GALDERMA-US13003682

PATIENT
  Age: 55 Year
  Sex: Female

DRUGS (1)
  1. METROGEL [Suspect]
     Active Substance: METRONIDAZOLE
     Dosage: 1%
     Route: 061
     Dates: start: 201311

REACTIONS (3)
  - Acne [Recovered/Resolved]
  - Rash papular [Recovered/Resolved]
  - Condition aggravated [Recovered/Resolved]
